FAERS Safety Report 25140889 (Version 1)
Quarter: 2025Q1

REPORT INFORMATION
  Report Type: Spontaneous
  Country: BR (occurrence: BR)
  Receive Date: 20250331
  Receipt Date: 20250331
  Transmission Date: 20250409
  Serious: Yes (Other)
  Sender: SAMSUNG BIOEPIS
  Company Number: BR-SAMSUNG BIOEPIS-SB-2025-10920

PATIENT
  Sex: Male

DRUGS (1)
  1. RENFLEXIS [Suspect]
     Active Substance: INFLIXIMAB-ABDA
     Indication: Crohn^s disease

REACTIONS (7)
  - Near death experience [Not Recovered/Not Resolved]
  - Nausea [Not Recovered/Not Resolved]
  - Tremor [Not Recovered/Not Resolved]
  - Cyanosis [Not Recovered/Not Resolved]
  - Tachycardia [Not Recovered/Not Resolved]
  - Body temperature increased [Not Recovered/Not Resolved]
  - Vomiting [Not Recovered/Not Resolved]
